FAERS Safety Report 8511600-1 (Version None)
Quarter: 2012Q3

REPORT INFORMATION
  Report Type: 
  Country: None (occurrence: None)
  Receive Date: 20120716
  Receipt Date: 20120710
  Transmission Date: 20120928
  Serious: Yes (Other)
  Sender: FDA-Public Use
  Company Number: PHHY2012BR060278

PATIENT
  Sex: Female

DRUGS (4)
  1. DIOVAN [Suspect]
     Dosage: 80 MG, UNK
     Dates: start: 20120628
  2. DIOVAN [Suspect]
     Dosage: 160 MG, UNK
     Dates: start: 20120608, end: 20120628
  3. DIOVAN HCT [Suspect]
     Dosage: 1 DF( 160 MG VALS AND 12.5 MG HCTZ), UNK
  4. DIOVAN HCT [Suspect]
     Dosage: 1 DF( 160 MG VALS AND 25 MG HCTZ), UNK

REACTIONS (1)
  - DEMENTIA ALZHEIMER'S TYPE [None]
